FAERS Safety Report 9160060 (Version 1)
Quarter: 2013Q1

REPORT INFORMATION
  Report Type: Spontaneous
  Country: US (occurrence: None)
  Receive Date: 20130215
  Receipt Date: 20130215
  Transmission Date: 20140127
  Serious: Yes (Hospitalization)
  Sender: FDA-Public Use
  Company Number: IDR-00701

PATIENT
  Age: 76 Year
  Sex: Female

DRUGS (4)
  1. PROPRANOLOL HYDROCHLORIDE [Suspect]
     Indication: HYPERTENSION
     Route: 048
  2. EYE DROPS [Concomitant]
  3. PROMETHAZINE [Concomitant]
  4. SINGULAIR [Concomitant]

REACTIONS (2)
  - Loss of consciousness [None]
  - Product substitution issue [None]
